FAERS Safety Report 7155798-9 (Version None)
Quarter: 2010Q4

REPORT INFORMATION
  Report Type: 
  Country: None (occurrence: None)
  Receive Date: 20101123
  Receipt Date: 20100315
  Transmission Date: 20110411
  Serious: No
  Sender: FDA-Public Use
  Company Number: 008841

PATIENT
  Sex: Female
  Weight: 79 kg

DRUGS (10)
  1. CIMZIA [Suspect]
     Indication: RHEUMATOID ARTHRITIS
     Dosage: (400MG SUBCUTANEOUS)
     Route: 058
     Dates: start: 20100224
  2. PREDNISONE [Concomitant]
  3. BISOPROLOL /01166101/ [Concomitant]
  4. BENICAR [Concomitant]
  5. OMEPRAZOLE [Concomitant]
  6. FOLIC ACID [Concomitant]
  7. METHOTREXATE [Concomitant]
  8. VITAMINE D VOOR SENIOREN [Concomitant]
  9. CENTRUM /00554501/ [Concomitant]
  10. FUROSEMIDE [Concomitant]

REACTIONS (5)
  - BLOOD PRESSURE INCREASED [None]
  - ERYTHEMA [None]
  - FEELING HOT [None]
  - HEADACHE [None]
  - SWELLING FACE [None]
